FAERS Safety Report 15104599 (Version 1)
Quarter: 2018Q3

REPORT INFORMATION
  Report Type: Spontaneous
  Country: PR (occurrence: PR)
  Receive Date: 20180703
  Receipt Date: 20180703
  Transmission Date: 20181010
  Serious: No
  Sender: FDA-Public Use
  Company Number: PR-PFIZER INC-2018266477

PATIENT
  Age: 52 Year
  Sex: Female

DRUGS (1)
  1. IBRANCE [Suspect]
     Active Substance: PALBOCICLIB
     Indication: BREAST CANCER FEMALE
     Dosage: 125 MG, CYCLIC (1 CAPSULE, DAILY X 21 DAYS/7 OFF)
     Route: 048
     Dates: start: 20180610

REACTIONS (1)
  - Sensitivity of teeth [Unknown]

NARRATIVE: CASE EVENT DATE: 2018
